FAERS Safety Report 4937402-0 (Version None)
Quarter: 2006Q1

REPORT INFORMATION
  Report Type: 
  Country: None (occurrence: None)
  Receive Date: 20060306
  Receipt Date: 20060221
  Transmission Date: 20060701
  Serious: Yes (Disabling, Other)
  Sender: FDA-Public Use
  Company Number: 2006025294

PATIENT
  Age: 73 Year
  Sex: Male

DRUGS (3)
  1. LIPITOR [Suspect]
     Indication: BLOOD CHOLESTEROL INCREASED
     Dosage: 2.5 MG
     Dates: start: 20030101, end: 20040501
  2. ZETIA [Suspect]
     Indication: BLOOD CHOLESTEROL INCREASED
     Dates: end: 20060101
  3. HYDROCHLOROTHIAZIDE [Concomitant]

REACTIONS (3)
  - DIFFICULTY IN WALKING [None]
  - DRUG INEFFECTIVE [None]
  - MYALGIA [None]
